FAERS Safety Report 11451974 (Version 1)
Quarter: 2015Q3

REPORT INFORMATION
  Report Type: Spontaneous
  Country: US (occurrence: US)
  Receive Date: 20150903
  Receipt Date: 20150903
  Transmission Date: 20151125
  Serious: No
  Sender: FDA-Public Use
  Company Number: US-ROCHE-1076268

PATIENT
  Age: 45 Year
  Sex: Male

DRUGS (7)
  1. METOPROLOL TARTRATE. [Concomitant]
     Active Substance: METOPROLOL TARTRATE
     Route: 050
  2. PEGASYS [Suspect]
     Active Substance: PEGINTERFERON ALFA-2A
     Indication: HEPATITIS C
     Dosage: 180 UNITS
     Route: 058
     Dates: start: 20110907
  3. TELAPREVIR [Suspect]
     Active Substance: TELAPREVIR
     Indication: HEPATITIS C
     Route: 050
     Dates: start: 20110907, end: 20111129
  4. RIBAVIRIN. [Suspect]
     Active Substance: RIBAVIRIN
     Indication: HEPATITIS C
     Route: 050
     Dates: start: 20110907
  5. ENALAPRIL [Concomitant]
     Active Substance: ENALAPRIL
     Route: 050
  6. COUMADIN [Concomitant]
     Active Substance: WARFARIN SODIUM
     Route: 065
  7. ASPIRIN. [Concomitant]
     Active Substance: ASPIRIN
     Route: 050

REACTIONS (2)
  - International normalised ratio increased [Recovered/Resolved]
  - Anticoagulation drug level below therapeutic [Recovered/Resolved]

NARRATIVE: CASE EVENT DATE: 20110909
